FAERS Safety Report 8200511-7 (Version None)
Quarter: 2012Q1

REPORT INFORMATION
  Report Type: 
  Country: None (occurrence: None)
  Receive Date: 20120312
  Receipt Date: 20120302
  Transmission Date: 20120608
  Serious: Yes (Other)
  Sender: FDA-Public Use
  Company Number: US-BAYER-2011-100283

PATIENT
  Age: 19 Year
  Sex: Female
  Weight: 95 kg

DRUGS (3)
  1. YASMIN [Suspect]
     Indication: CONTRACEPTION
     Dosage: UNK
     Dates: start: 20060501, end: 20070101
  2. IBUPROFEN [Concomitant]
     Indication: HEADACHE
     Dosage: 200 MG, PRN
     Route: 048
  3. YAZ [Suspect]
     Indication: CONTRACEPTION
     Dosage: UNK
     Dates: start: 20080801, end: 20091001

REACTIONS (5)
  - CHOLECYSTITIS ACUTE [None]
  - CHOLELITHIASIS [None]
  - INJURY [None]
  - ABDOMINAL PAIN UPPER [None]
  - PAIN [None]
